FAERS Safety Report 10339808 (Version 1)
Quarter: 2014Q3

REPORT INFORMATION
  Report Type: Spontaneous
  Country: CA (occurrence: None)
  Receive Date: 20140722
  Receipt Date: 20140722
  Transmission Date: 20150326
  Serious: Yes (Other)
  Sender: FDA-Public Use
  Company Number: RB-69576-2014

PATIENT
  Sex: Female
  Weight: 3.8 kg

DRUGS (4)
  1. SUBUTEX [Suspect]
     Active Substance: BUPRENORPHINE HYDROCHLORIDE
     Indication: DRUG DEPENDENCE
     Route: 064
     Dates: start: 201309, end: 201312
  2. KEFLEX [Concomitant]
     Active Substance: CEPHALEXIN
  3. FERROUS GLUCONATE (FERROUS GLUCONATE) [Concomitant]
     Active Substance: FERROUS GLUCONATE
  4. SUBOXONE [Suspect]
     Active Substance: BUPRENORPHINE HYDROCHLORIDE\NALOXONE HYDROCHLORIDE
     Indication: DRUG DEPENDENCE
     Route: 064
     Dates: start: 201205, end: 201309

REACTIONS (3)
  - Drug withdrawal syndrome neonatal [None]
  - Jaundice neonatal [None]
  - Foetal exposure during pregnancy [None]
